FAERS Safety Report 5733614-7 (Version None)
Quarter: 2008Q2

REPORT INFORMATION
  Report Type: 
  Country: None (occurrence: None)
  Receive Date: 20080509
  Receipt Date: 20080505
  Transmission Date: 20081010
  Serious: Yes (Life-Threatening, Hospitalization, Disabling)
  Sender: FDA-Public Use
  Company Number: US-PFIZER INC-2008030202

PATIENT
  Age: 16 Year
  Sex: Male
  Weight: 62 kg

DRUGS (2)
  1. GENOTROPIN [Suspect]
     Indication: GROWTH HORMONE DEFICIENCY
  2. DEPAKOTE [Concomitant]

REACTIONS (1)
  - GLIOMA [None]
